FAERS Safety Report 10713682 (Version 1)
Quarter: 2015Q1

REPORT INFORMATION
  Report Type: Spontaneous
  Country: US (occurrence: US)
  Receive Date: 20150115
  Receipt Date: 20150115
  Transmission Date: 20150721
  Serious: Yes (Death)
  Sender: FDA-Public Use
  Company Number: US-PFIZER INC-2015010495

PATIENT
  Age: 23 Year
  Sex: Male

DRUGS (4)
  1. DOXEPIN HCL [Suspect]
     Active Substance: DOXEPIN HYDROCHLORIDE
     Route: 048
  2. ALPRAZOLAM. [Suspect]
     Active Substance: ALPRAZOLAM
     Route: 048
  3. COCAINE [Suspect]
     Active Substance: COCAINE
     Route: 048
  4. VALPROIC ACID. [Suspect]
     Active Substance: VALPROIC ACID
     Route: 048

REACTIONS (2)
  - Intentional product misuse [Fatal]
  - Death [Fatal]

NARRATIVE: CASE EVENT DATE: 2013
